FAERS Safety Report 4755584-0 (Version None)
Quarter: 2005Q3

REPORT INFORMATION
  Report Type: 
  Country: None (occurrence: None)
  Receive Date: 20050830
  Receipt Date: 20050523
  Transmission Date: 20060218
  Serious: No
  Sender: FDA-Public Use
  Company Number: US-BRISTOL-MYERS SQUIBB COMPANY-12979423

PATIENT
  Age: 19 Year
  Sex: Female
  Weight: 86 kg

DRUGS (2)
  1. ABILIFY [Suspect]
     Indication: BIPOLAR DISORDER
  2. ATIVAN [Concomitant]

REACTIONS (1)
  - HYPERHIDROSIS [None]
